FAERS Safety Report 4425075-5 (Version None)
Quarter: 2004Q3

REPORT INFORMATION
  Report Type: 
  Country: None (occurrence: None)
  Receive Date: 20040813
  Receipt Date: 20040806
  Transmission Date: 20050211
  Serious: Yes (Hospitalization)
  Sender: FDA-Public Use
  Company Number: JP-BRISTOL-MYERS SQUIBB COMPANY-12663787

PATIENT
  Age: 54 Year
  Sex: Female

DRUGS (2)
  1. TAXOL [Suspect]
     Indication: OVARIAN CANCER
     Route: 042
     Dates: start: 20040714, end: 20040714
  2. PARAPLATIN [Suspect]
     Indication: OVARIAN CANCER
     Route: 042
     Dates: start: 20040714, end: 20040714

REACTIONS (1)
  - INTESTINAL ISCHAEMIA [None]
